FAERS Safety Report 4625806-5 (Version None)
Quarter: 2005Q1

REPORT INFORMATION
  Report Type: 
  Country: None (occurrence: None)
  Receive Date: 20050330
  Receipt Date: 20050328
  Transmission Date: 20050727
  Serious: Yes (Hospitalization)
  Sender: FDA-Public Use
  Company Number: 211395

PATIENT
  Age: 46 Year
  Sex: Female
  Weight: 62.5 kg

DRUGS (4)
  1. RITUXAN [Suspect]
     Indication: EXTRANODAL MARGINAL ZONE B-CELL LYMPHOMA (MALT TYPE)
     Dosage: 600 MG, INTRAVENOUS
     Route: 042
     Dates: start: 20040705, end: 20040818
  2. CHLORPHENIRAMINE MALEATE [Concomitant]
  3. ACETAMINOPHEN [Concomitant]
  4. LOXOPROFEN (LOXOPROFEN SODIUM) [Concomitant]

REACTIONS (8)
  - ALANINE AMINOTRANSFERASE INCREASED [None]
  - ASPARTATE AMINOTRANSFERASE INCREASED [None]
  - BLOOD ALKALINE PHOSPHATASE INCREASED [None]
  - BLOOD LACTATE DEHYDROGENASE INCREASED [None]
  - LIVER DISORDER [None]
  - URINARY TRACT INFECTION [None]
  - VIRAL INFECTION [None]
  - VOMITING [None]
